FAERS Safety Report 21970382 (Version 1)
Quarter: 2023Q1

REPORT INFORMATION
  Report Type: Spontaneous
  Country: GB (occurrence: GB)
  Receive Date: 20230209
  Receipt Date: 20230209
  Transmission Date: 20230418
  Serious: Yes (Hospitalization)
  Sender: FDA-Public Use
  Company Number: None

PATIENT
  Age: 77 Year

DRUGS (5)
  1. OMEPRAZOLE [Suspect]
     Active Substance: OMEPRAZOLE
     Dosage: 20MG GASTRO-RESISTANT CAPSULES ONE OD
  2. SENNA [Concomitant]
     Active Substance: SENNA LEAF\SENNOSIDES\SENNOSIDES A AND B
     Dosage: 7.5MG TABLETS 1 TO 2 A ON
  3. SIMVASTATIN [Concomitant]
     Active Substance: SIMVASTATIN
     Dosage: 40MG TABLETS ONE ONE ON 28 TABLET
  4. TRAMADOL [Concomitant]
     Active Substance: TRAMADOL
     Dosage: 50MG CAPSULES ONE OR TWO TO BE TAKEN EVERY FOUR HOURS WHEN NECESSARY. MAXIMUM 8 TABLETS IN 24 HOURS
  5. COCODAMOL [Concomitant]
     Active Substance: ACETAMINOPHEN\CODEINE PHOSPHATE
     Dosage: 30MG/500MG TABLETS 1 -2 TABS FOUR TIMES A DAY AS REQUIRED  ; AS NECESSARY

REACTIONS (1)
  - Femur fracture [Unknown]
